FAERS Safety Report 8113510-0 (Version None)
Quarter: 2012Q1

REPORT INFORMATION
  Report Type: 
  Country: None (occurrence: None)
  Receive Date: 20120203
  Receipt Date: 20120126
  Transmission Date: 20120608
  Serious: Yes (Death, Life-Threatening, Hospitalization, Other)
  Sender: FDA-Public Use
  Company Number: FR-PFIZER INC-2009270303

PATIENT
  Age: 47 Year
  Sex: Female

DRUGS (6)
  1. ATORVASTATIN [Suspect]
     Dosage: UNK
     Route: 048
     Dates: start: 20090415, end: 20090713
  2. RAMIPRIL [Suspect]
     Dosage: UNK
     Route: 048
     Dates: start: 20090415, end: 20090811
  3. PLAVIX [Suspect]
     Dosage: UNK
     Route: 048
     Dates: start: 20090415, end: 20090811
  4. ASPIRIN [Suspect]
     Dosage: UNK
     Route: 048
     Dates: start: 20090415, end: 20090828
  5. BISOPROLOL FUMARATE [Suspect]
     Dosage: UNK
     Route: 048
     Dates: start: 20090415, end: 20090828
  6. OMACOR [Suspect]
     Dosage: UNK
     Route: 048
     Dates: start: 20090415, end: 20090811

REACTIONS (5)
  - SEPTIC SHOCK [None]
  - DISSEMINATED INTRAVASCULAR COAGULATION [None]
  - HEPATIC ENCEPHALOPATHY [None]
  - HEPATITIS FULMINANT [None]
  - CELLULITIS ENTEROCOCCAL [None]
